FAERS Safety Report 5319429-2 (Version None)
Quarter: 2007Q2

REPORT INFORMATION
  Report Type: 
  Country: None (occurrence: None)
  Receive Date: 20070508
  Receipt Date: 20070426
  Transmission Date: 20071010
  Serious: Yes (Other)
  Sender: FDA-Public Use
  Company Number: US-ELI_LILLY_AND_COMPANY-US200704005899

PATIENT
  Age: 17 Year
  Sex: Female
  Weight: 54.421 kg

DRUGS (2)
  1. STRATTERA [Suspect]
     Indication: ATTENTION DEFICIT/HYPERACTIVITY DISORDER
     Dosage: 25 MG, DAILY (1/D)
     Route: 048
  2. STRATTERA [Suspect]
     Dosage: 54 MG, DAILY (1/D)
     Route: 048

REACTIONS (1)
  - LOSS OF CONSCIOUSNESS [None]
